FAERS Safety Report 25463314 (Version 4)
Quarter: 2025Q3

REPORT INFORMATION
  Report Type: Spontaneous
  Country: EU (occurrence: EU)
  Receive Date: 20250620
  Receipt Date: 20250728
  Transmission Date: 20251021
  Serious: Yes (Hospitalization, Congenital Anomaly)
  Sender: BIOGEN
  Company Number: EU-BIOGEN-2025BI01314471

PATIENT
  Age: 0 Year
  Sex: Male

DRUGS (2)
  1. TYSABRI [Suspect]
     Active Substance: NATALIZUMAB
     Indication: Maternal exposure timing unspecified
     Route: 050
     Dates: start: 20241011, end: 20250419
  2. TYSABRI [Suspect]
     Active Substance: NATALIZUMAB
     Indication: Maternal exposure timing unspecified
     Route: 050
     Dates: start: 20240801, end: 20241011

REACTIONS (4)
  - Cleft palate [Unknown]
  - Cleft lip [Not Recovered/Not Resolved]
  - Hypoacusis [Not Recovered/Not Resolved]
  - Foetal exposure during pregnancy [Recovered/Resolved]

NARRATIVE: CASE EVENT DATE: 20250522
